FAERS Safety Report 11705677 (Version 12)
Quarter: 2018Q1

REPORT INFORMATION
  Report Type: Spontaneous
  Country: US (occurrence: US)
  Receive Date: 20151106
  Receipt Date: 20180215
  Transmission Date: 20180508
  Serious: Yes (Other)
  Sender: FDA-Public Use
  Company Number: PHEH2015US022634

PATIENT
  Age: 36 Year
  Sex: Female

DRUGS (4)
  1. ZOFRAN [Suspect]
     Active Substance: ONDANSETRON HYDROCHLORIDE
     Indication: PRODUCT USED FOR UNKNOWN INDICATION
     Route: 048
  2. ZOFRAN [Suspect]
     Active Substance: ONDANSETRON HYDROCHLORIDE
     Indication: PRODUCT USED FOR UNKNOWN INDICATION
     Route: 042
  3. ONDANSETRON. [Suspect]
     Active Substance: ONDANSETRON
     Indication: VOMITING IN PREGNANCY
     Dosage: 8 MG, TID (EVERY 6 TO 8 HOURS)
     Route: 048
     Dates: start: 20121228, end: 20121230
  4. ZOFRAN ODT [Suspect]
     Active Substance: ONDANSETRON HYDROCHLORIDE
     Indication: VOMITING IN PREGNANCY
     Dosage: 8 MG, TID (EVERY 6 TO 8 HOURS)
     Route: 048

REACTIONS (15)
  - Premature delivery [Unknown]
  - Emotional distress [Unknown]
  - Gestational hypertension [Unknown]
  - Pain [Unknown]
  - Vaginal haemorrhage [Unknown]
  - Scar [Unknown]
  - Anhedonia [Unknown]
  - Thyroid dysfunction in pregnancy [Unknown]
  - Emphysema [Unknown]
  - Anxiety [Unknown]
  - Product use in unapproved indication [Unknown]
  - Maternal exposure during pregnancy [Unknown]
  - Injury [Unknown]
  - Depression [Unknown]
  - Headache [Unknown]

NARRATIVE: CASE EVENT DATE: 20130330
